FAERS Safety Report 8007218-X (Version None)
Quarter: 2011Q4

REPORT INFORMATION
  Report Type: 
  Country: None (occurrence: None)
  Receive Date: 20111227
  Receipt Date: 20111219
  Transmission Date: 20120403
  Serious: Yes (Life-Threatening, Other)
  Sender: FDA-Public Use
  Company Number: JP-PFIZER INC-2011280103

PATIENT
  Age: 65 Year
  Sex: Male
  Weight: 65 kg

DRUGS (9)
  1. SUTENT [Suspect]
     Indication: RENAL CELL CARCINOMA
     Dosage: 37.5 MG, 1X/DAY
     Route: 048
     Dates: start: 20111012, end: 20111026
  2. CEFTRIAXONE SODIUM [Concomitant]
     Indication: PYREXIA
     Dosage: UNK
     Route: 041
     Dates: start: 20111025, end: 20111025
  3. ALLOPURINOL [Concomitant]
     Indication: HYPERURICAEMIA
     Dosage: UNK
     Dates: start: 20111003, end: 20111016
  4. SUTENT [Suspect]
     Dosage: 2 CAPSULES DAILY
     Route: 048
     Dates: start: 20111203, end: 20111203
  5. SUTENT [Suspect]
     Dosage: 2 CAPSULES DAILY
     Dates: start: 20111205
  6. AMLODIPINE [Concomitant]
     Indication: HYPERTENSION
     Dosage: 2.5 MG, 1X/DAY
     Route: 048
     Dates: start: 20110614
  7. CORTRIL [Concomitant]
     Dosage: 15 MG, 2X/DAY
     Route: 048
     Dates: start: 20110607
  8. AMLODIPINE [Concomitant]
     Dosage: 5 MG/DAY
     Dates: start: 20111019, end: 20111101
  9. CEFDINIR [Concomitant]
     Indication: PYREXIA
     Dosage: UNK
     Route: 048
     Dates: start: 20111025, end: 20111026

REACTIONS (6)
  - ADRENAL INSUFFICIENCY [None]
  - HEPATIC FUNCTION ABNORMAL [None]
  - PANCREATIC ENZYMES INCREASED [None]
  - PYREXIA [None]
  - THROMBOCYTOPENIA [None]
  - TOXIC SKIN ERUPTION [None]
